FAERS Safety Report 11862546 (Version 2)
Quarter: 2016Q1

REPORT INFORMATION
  Report Type: Spontaneous
  Country: JP (occurrence: JP)
  Receive Date: 20151223
  Receipt Date: 20160203
  Transmission Date: 20160526
  Serious: Yes (Other)
  Sender: FDA-Public Use
  Company Number: JP-ALLERGAN-1526881US

PATIENT
  Age: 68 Year
  Sex: Male

DRUGS (2)
  1. CRAVIT [Concomitant]
     Active Substance: LEVOFLOXACIN
  2. BOTOX [Suspect]
     Active Substance: ONABOTULINUMTOXINA
     Indication: STRABISMUS
     Dosage: 5 UNITS, SINGLE
     Route: 030
     Dates: start: 20151118, end: 20151118

REACTIONS (2)
  - Eyelid ptosis [Not Recovered/Not Resolved]
  - Ocular discomfort [Not Recovered/Not Resolved]

NARRATIVE: CASE EVENT DATE: 20151120
